FAERS Safety Report 14305144 (Version 1)
Quarter: 2017Q4

REPORT INFORMATION
  Report Type: Spontaneous
  Country: JP (occurrence: JP)
  Receive Date: 20171219
  Receipt Date: 20171219
  Transmission Date: 20180321
  Serious: Yes (Other)
  Sender: FDA-Public Use
  Company Number: JP-OTSUKA-BJ20061544

PATIENT
  Age: 52 Year
  Sex: Male
  Weight: 70 kg

DRUGS (25)
  1. MEILAX [Concomitant]
     Active Substance: ETHYL LOFLAZEPATE
     Indication: INSOMNIA
     Dosage: 2 MG, QD
     Route: 048
     Dates: start: 20040428
  2. TANATRIL [Concomitant]
     Active Substance: IMIDAPRIL
     Indication: HYPERTENSION
     Dosage: 5 MG, BID
     Route: 048
     Dates: start: 20040428
  3. RISPERIDONE. [Concomitant]
     Active Substance: RISPERIDONE
     Dosage: 3 MG, QD
     Route: 048
     Dates: start: 20060703, end: 20060710
  4. ROHYPNOL [Concomitant]
     Active Substance: FLUNITRAZEPAM
     Indication: INSOMNIA
     Dosage: 2 MG, QD
     Route: 048
     Dates: start: 20040428
  5. ALLOTOP-L [Concomitant]
     Indication: HYPERTENSION
     Dosage: 20 MG, BID
     Route: 048
     Dates: start: 20040428
  6. TRAZODONE [Concomitant]
     Active Substance: TRAZODONE HYDROCHLORIDE
     Indication: INSOMNIA
     Dosage: 150 MG, QD
     Route: 048
     Dates: start: 20040428
  7. CAFEINE [Concomitant]
     Active Substance: CAFFEINE
     Indication: SOMNOLENCE
     Dosage: 0.2 G, QD
     Route: 048
     Dates: start: 20040428
  8. FLUNITRAZEPAM [Concomitant]
     Active Substance: FLUNITRAZEPAM
     Indication: INSOMNIA
     Dosage: 2 MG, UNK
     Route: 048
     Dates: start: 20040428
  9. TAMSULOSIN HYDROCHLORIDE. [Concomitant]
     Active Substance: TAMSULOSIN HYDROCHLORIDE
     Indication: DYSURIA
     Dosage: .4 MG, UNK
     Route: 048
     Dates: start: 20040428
  10. INDERAL [Concomitant]
     Active Substance: PROPRANOLOL HYDROCHLORIDE
     Indication: TREMOR
     Dosage: 20 MG, BID
     Route: 048
     Dates: start: 20040428
  11. MUCOSTA TABLETS 100MG [Concomitant]
     Active Substance: REBAMIPIDE
     Indication: CHRONIC GASTRITIS
     Dosage: 300 MG, UNK
     Route: 048
     Dates: start: 20040428
  12. RISPERIDONE. [Concomitant]
     Active Substance: RISPERIDONE
     Indication: SCHIZOPHRENIA
     Dosage: 12 MG, QD
     Route: 048
     Dates: start: 20050227, end: 20060725
  13. ABILIFY [Suspect]
     Active Substance: ARIPIPRAZOLE
     Indication: SCHIZOPHRENIA
     Dosage: 6 MG, UNK
     Route: 048
     Dates: start: 20060703, end: 20060709
  14. MUCOSTA [Concomitant]
     Active Substance: REBAMIPIDE
     Indication: CHRONIC GASTRITIS
     Dosage: 100 MG, TID
     Route: 048
     Dates: start: 20040428
  15. HARNAL [Concomitant]
     Active Substance: TAMSULOSIN HYDROCHLORIDE
     Indication: DYSURIA
     Dosage: 0.2 MG, BID
     Route: 048
     Dates: start: 20040428
  16. ABILIFY [Suspect]
     Active Substance: ARIPIPRAZOLE
     Dosage: 12 MG, UNK
     Route: 048
     Dates: start: 20060710, end: 20060716
  17. ABILIFY [Suspect]
     Active Substance: ARIPIPRAZOLE
     Dosage: 18 MG, UNK
     Route: 048
     Dates: start: 20060717, end: 20060731
  18. ABILIFY [Suspect]
     Active Substance: ARIPIPRAZOLE
     Dosage: 24 MG, UNK
     Route: 048
     Dates: start: 20060801, end: 20060803
  19. RISPERDAL [Concomitant]
     Active Substance: RISPERIDONE
     Dosage: 6 MG, QD
     Route: 048
     Dates: start: 20060626, end: 20060702
  20. TRAZODONE HYDROCHLORIDE. [Concomitant]
     Active Substance: TRAZODONE HYDROCHLORIDE
     Dosage: 150 ?G, UNK
     Route: 048
     Dates: start: 20040428
  21. LEXOTAN [Concomitant]
     Active Substance: BROMAZEPAM
     Indication: ANXIETY
     Dosage: 5 MG, TID
     Route: 048
     Dates: start: 20040428
  22. RISPERDAL [Concomitant]
     Active Substance: RISPERIDONE
     Indication: SCHIZOPHRENIA
     Dosage: 12 MG, QD
     Route: 048
     Dates: start: 20060227, end: 20060625
  23. RISPERDAL [Concomitant]
     Active Substance: RISPERIDONE
     Dosage: 3 MG, QD
     Route: 048
     Dates: start: 20060703, end: 20060710
  24. RISPERIDONE. [Concomitant]
     Active Substance: RISPERIDONE
     Dosage: 6 MG, QD
     Route: 048
     Dates: start: 20060626, end: 20060702
  25. PROPRANOLOL HCL [Concomitant]
     Active Substance: PROPRANOLOL HYDROCHLORIDE
     Indication: TREMOR
     Dosage: 40 MG, UNK
     Route: 048
     Dates: start: 20040428

REACTIONS (3)
  - Psychiatric symptom [Not Recovered/Not Resolved]
  - Blood glucose increased [Unknown]
  - Gamma-glutamyltransferase increased [Unknown]

NARRATIVE: CASE EVENT DATE: 20060803
